FAERS Safety Report 6375687-7 (Version None)
Quarter: 2009Q3

REPORT INFORMATION
  Report Type: 
  Country: None (occurrence: None)
  Receive Date: 20090922
  Receipt Date: 20090922
  Transmission Date: 20100115
  Serious: Yes (Hospitalization, Disabling)
  Sender: FDA-Public Use
  Company Number: None

PATIENT
  Age: 83 Year
  Sex: Female

DRUGS (2)
  1. LOVENOX [Suspect]
     Dosage: 30 MG Q12H SQ
     Route: 058
     Dates: start: 20090524, end: 20090602
  2. ASPIRIN [Suspect]
     Dosage: 81 MG QDAY PO
     Route: 048
     Dates: start: 20090407, end: 20090602

REACTIONS (2)
  - ANAEMIA [None]
  - UPPER GASTROINTESTINAL HAEMORRHAGE [None]
